FAERS Safety Report 9476611 (Version 1)
Quarter: 2013Q3

REPORT INFORMATION
  Report Type: Spontaneous
  Country: US (occurrence: None)
  Receive Date: 20130823
  Receipt Date: 20130823
  Transmission Date: 20140515
  Serious: Yes (Other)
  Sender: FDA-Public Use
  Company Number: None

PATIENT
  Age: 70 Year
  Sex: Female
  Weight: 63.5 kg

DRUGS (2)
  1. CIPRO [Suspect]
     Indication: SINUSITIS
     Dates: start: 20121105, end: 20121204
  2. LEVAQUIN [Suspect]

REACTIONS (3)
  - No therapeutic response [None]
  - Pain in extremity [None]
  - Tendon rupture [None]
